FAERS Safety Report 5586793-9 (Version None)
Quarter: 2008Q1

REPORT INFORMATION
  Report Type: 
  Country: None (occurrence: None)
  Receive Date: 20080107
  Receipt Date: 20080103
  Transmission Date: 20080703
  Serious: Yes (Hospitalization)
  Sender: FDA-Public Use
  Company Number: 2007BI022197

PATIENT
  Age: 18 Year
  Sex: Female

DRUGS (3)
  1. AVONEX [Suspect]
     Indication: MULTIPLE SCLEROSIS
     Dosage: 30 UG;QW;IM; 30 UG;QW;IM
     Route: 030
     Dates: start: 20070725, end: 20071101
  2. AVONEX [Suspect]
     Indication: MULTIPLE SCLEROSIS
     Dosage: 30 UG;QW;IM; 30 UG;QW;IM
     Route: 030
     Dates: start: 20071102
  3. AVONEX [Suspect]

REACTIONS (2)
  - INFLUENZA LIKE ILLNESS [None]
  - SIALOADENITIS [None]
